FAERS Safety Report 5563113-7 (Version None)
Quarter: 2007Q4

REPORT INFORMATION
  Report Type: 
  Country: None (occurrence: None)
  Receive Date: 20071217
  Receipt Date: 20071207
  Transmission Date: 20080405
  Serious: Yes (Death)
  Sender: FDA-Public Use
  Company Number: A0699229A

PATIENT
  Sex: Male

DRUGS (2)
  1. ADVAIR DISKUS 100/50 [Suspect]
     Indication: ASTHMA
     Route: 055
     Dates: end: 20021016
  2. SEREVENT [Suspect]
     Indication: ASTHMA
     Route: 055
     Dates: end: 20021016

REACTIONS (3)
  - ANOXIC ENCEPHALOPATHY [None]
  - LUNG HYPERINFLATION [None]
  - RESPIRATORY ARREST [None]
